FAERS Safety Report 19464650 (Version 2)
Quarter: 2021Q2

REPORT INFORMATION
  Report Type: Spontaneous
  Country: CA (occurrence: CA)
  Receive Date: 20210626
  Receipt Date: 20210626
  Transmission Date: 20210717
  Serious: Yes (Other)
  Sender: FDA-Public Use
  Company Number: CA-ROCHE-2855410

PATIENT

DRUGS (1)
  1. CLONAZEPAM. [Suspect]
     Active Substance: CLONAZEPAM
     Indication: PRODUCT USED FOR UNKNOWN INDICATION
     Route: 065

REACTIONS (9)
  - Anxiety [Unknown]
  - Balance disorder [Unknown]
  - Somnolence [Unknown]
  - Dizziness [Unknown]
  - Confusional state [Unknown]
  - Gait disturbance [Unknown]
  - Suicidal ideation [Unknown]
  - Depression [Unknown]
  - Amnesia [Unknown]
